FAERS Safety Report 25984845 (Version 2)
Quarter: 2025Q4

REPORT INFORMATION
  Report Type: Report from Study
  Country: US (occurrence: US)
  Receive Date: 20251031
  Receipt Date: 20251106
  Transmission Date: 20260118
  Serious: Yes (Other)
  Sender: MALLINCKRODT
  Company Number: US-MALLINCKRODT-MNK202506724

PATIENT
  Age: 65 Year
  Sex: Female

DRUGS (2)
  1. CORTICOTROPIN [Suspect]
     Active Substance: CORTICOTROPIN
     Indication: Rheumatoid arthritis
     Route: 058
  2. AZATHIOPRINE [Concomitant]
     Active Substance: AZATHIOPRINE
     Dosage: UNKNOWN

REACTIONS (7)
  - Hip surgery [Unknown]
  - Nausea [Unknown]
  - Dehydration [Unknown]
  - Weight decreased [Unknown]
  - Abdominal pain upper [Unknown]
  - Asthenopia [Unknown]
  - Vomiting [Unknown]

NARRATIVE: CASE EVENT DATE: 20250101
